APPROVED DRUG PRODUCT: DALBAVANCIN HYDROCHLORIDE
Active Ingredient: DALBAVANCIN HYDROCHLORIDE
Strength: EQ 500MG BASE/VIAL
Dosage Form/Route: POWDER;INTRAVENOUS
Application: A219465 | Product #001 | TE Code: AP
Applicant: TEVA PHARMACEUTICALS INC
Approved: Oct 23, 2025 | RLD: No | RS: No | Type: RX